FAERS Safety Report 9585487 (Version 1)
Quarter: 2013Q4

REPORT INFORMATION
  Report Type: Spontaneous
  Country: US (occurrence: US)
  Receive Date: 20131003
  Receipt Date: 20131003
  Transmission Date: 20140711
  Serious: Yes (Other)
  Sender: FDA-Public Use
  Company Number: US-AMGEN-USASP2013069061

PATIENT
  Age: 42 Year
  Sex: Male

DRUGS (1)
  1. EPOGEN [Suspect]
     Indication: RENAL FAILURE CHRONIC
     Dosage: 800 UNIT, UNK
     Route: 065
     Dates: start: 2008

REACTIONS (2)
  - Anaemia [Unknown]
  - Aplasia pure red cell [Unknown]
